FAERS Safety Report 4596266-8 (Version None)
Quarter: 2005Q1

REPORT INFORMATION
  Report Type: 
  Country: None (occurrence: None)
  Receive Date: 20050302
  Receipt Date: 20050105
  Transmission Date: 20050727
  Serious: Yes (Other)
  Sender: FDA-Public Use
  Company Number: US-KINGPHARMUSA00001-K200500010

PATIENT
  Age: 47 Year
  Sex: Female

DRUGS (7)
  1. SEPTRA [Suspect]
     Indication: PNEUMOCYSTIS JIROVECI INFECTION
     Dosage: 2 UNK, QD
     Route: 048
     Dates: start: 20041004, end: 20041018
  2. ZOVIRAX [Suspect]
     Indication: PNEUMOCYSTIS JIROVECI INFECTION
     Dosage: 400 MG, BID
     Route: 048
     Dates: start: 20041004, end: 20041018
  3. FLUDARA [Concomitant]
     Dates: start: 20041004
  4. SENDOXAN [Concomitant]
     Dates: start: 20041004
  5. DELTISON [Concomitant]
     Dates: start: 20041004
  6. ZOFRAN [Concomitant]
     Dosage: UNK, UNK
     Dates: start: 20041004
  7. ZYLORIC ^FAES^ [Concomitant]
     Dates: start: 20041004

REACTIONS (1)
  - STEVENS-JOHNSON SYNDROME [None]
